FAERS Safety Report 15523310 (Version 1)
Quarter: 2018Q4

REPORT INFORMATION
  Report Type: Spontaneous
  Country: ES (occurrence: ES)
  Receive Date: 20181018
  Receipt Date: 20181018
  Transmission Date: 20190205
  Serious: Yes (Hospitalization)
  Sender: FDA-Public Use
  Company Number: ES-SUN PHARMACEUTICAL INDUSTRIES LTD-2018RR-187895

PATIENT
  Age: 73 Year
  Sex: Male

DRUGS (5)
  1. OMEPRAZOLE. [Suspect]
     Active Substance: OMEPRAZOLE
     Indication: PRODUCT USED FOR UNKNOWN INDICATION
     Dosage: 1 CP DIA ()
     Route: 048
     Dates: start: 20171010, end: 20171015
  2. KREON 25.000 U CAPSULAS DURAS GASTRORRESISTENTES, 100 CAPSULAS [Concomitant]
     Indication: PRODUCT USED FOR UNKNOWN INDICATION
     Dosage: 1-1-1 ()
     Route: 048
     Dates: start: 20171010
  3. METAMIZOL (111A) [Suspect]
     Active Substance: METAMIZOL SODIUM
     Indication: PRODUCT USED FOR UNKNOWN INDICATION
     Dosage: 1-1-1 ()
     Route: 048
     Dates: start: 20171010, end: 20171015
  4. CLEXANE 20 MG (2.000 UI) SOLUCION INYECTABLE EN AMPOLLA , 10 AMPOLLAS [Concomitant]
     Indication: PRODUCT USED FOR UNKNOWN INDICATION
     Dosage: 40 MG DIA ()
     Route: 058
     Dates: start: 20171010
  5. PROPANOLOL (2218A) [Concomitant]
     Indication: PRODUCT USED FOR UNKNOWN INDICATION
     Dosage: 10MG-0-10MG ()
     Route: 048
     Dates: start: 20171010

REACTIONS (1)
  - Colitis [Recovered/Resolved]

NARRATIVE: CASE EVENT DATE: 20171015
